FAERS Safety Report 21004352 (Version 7)
Quarter: 2022Q4

REPORT INFORMATION
  Report Type: Report from Study
  Country: US (occurrence: US)
  Receive Date: 20220624
  Receipt Date: 20221202
  Transmission Date: 20230113
  Serious: No
  Sender: FDA-Public Use
  Company Number: US-BIOVITRUM-2022US06829

PATIENT
  Sex: Female

DRUGS (1)
  1. KINERET [Suspect]
     Active Substance: ANAKINRA
     Indication: Product used for unknown indication

REACTIONS (14)
  - Body temperature increased [Unknown]
  - Escherichia infection [Unknown]
  - Illness [Unknown]
  - Urinary tract infection [Unknown]
  - Rhinorrhoea [Unknown]
  - Oropharyngeal pain [Unknown]
  - Fatigue [Unknown]
  - Sinusitis [Unknown]
  - Weight increased [Unknown]
  - Diarrhoea [Unknown]
  - Appetite disorder [Unknown]
  - Headache [Unknown]
  - Injection site pain [Unknown]
  - Product dose omission issue [Unknown]
